FAERS Safety Report 15177973 (Version 2)
Quarter: 2018Q3

REPORT INFORMATION
  Report Type: Report from Study
  Country: None (occurrence: CH)
  Receive Date: 20180721
  Receipt Date: 20180724
  Transmission Date: 20181010
  Serious: Yes (Hospitalization)
  Sender: FDA-Public Use
  Company Number: CH-ABBVIE-18S-151-2423352-00

PATIENT
  Sex: Male

DRUGS (4)
  1. DUODOPA [Suspect]
     Active Substance: CARBIDOPA\LEVODOPA
     Dosage: MORNING DOSE: 8ML?CONTINUOUS DOSE: 2.5ML/H?EXTRA DOSE: 2.5ML?16TH THERAPY
     Route: 050
     Dates: start: 20180502, end: 20180717
  2. DUODOPA [Suspect]
     Active Substance: CARBIDOPA\LEVODOPA
     Indication: PARKINSON^S DISEASE
     Route: 050
     Dates: start: 20130117, end: 20170313
  3. DUODOPA [Suspect]
     Active Substance: CARBIDOPA\LEVODOPA
     Dosage: MORNING DOSE: 10ML?CONTINUOUS DOSE: 4.7ML/H?EXTRA DOSE: 4.5ML?16 TH THERAPY
     Route: 050
     Dates: start: 20170313, end: 20180502
  4. DUODOPA [Suspect]
     Active Substance: CARBIDOPA\LEVODOPA
     Dosage: MORNING DOSE: 8ML?CONTINUOUS DOSE: 2.5ML/H?EXTRA DOSE: 3ML?16H THERAPY
     Route: 050
     Dates: start: 20180717

REACTIONS (8)
  - Tremor [Unknown]
  - Dementia [Not Recovered/Not Resolved]
  - Flat affect [Unknown]
  - Aggression [Recovering/Resolving]
  - Device issue [Recovered/Resolved]
  - Drug effect decreased [Unknown]
  - Freezing phenomenon [Unknown]
  - Depression [Unknown]
